FAERS Safety Report 20861995 (Version 7)
Quarter: 2022Q3

REPORT INFORMATION
  Report Type: Report from Study
  Country: FR (occurrence: FR)
  Receive Date: 20220523
  Receipt Date: 20220906
  Transmission Date: 20221027
  Serious: Yes (Other)
  Sender: FDA-Public Use
  Company Number: FR-GILEAD-2022-0569307

PATIENT
  Sex: Female
  Weight: 69 kg

DRUGS (14)
  1. SACITUZUMAB GOVITECAN [Suspect]
     Active Substance: SACITUZUMAB GOVITECAN
     Indication: Triple negative breast cancer
     Dosage: 10 MG/KG, C1D1 C1D8
     Route: 042
     Dates: start: 20220105, end: 20220112
  2. SACITUZUMAB GOVITECAN [Suspect]
     Active Substance: SACITUZUMAB GOVITECAN
     Dosage: 7.5 MG/KG, C2D1 C2D8
     Route: 042
     Dates: start: 20220202, end: 20220209
  3. SACITUZUMAB GOVITECAN [Suspect]
     Active Substance: SACITUZUMAB GOVITECAN
     Dosage: 7.5 MG/KG, C3D1 C3D8
     Route: 042
     Dates: start: 20220223, end: 20220302
  4. SACITUZUMAB GOVITECAN [Suspect]
     Active Substance: SACITUZUMAB GOVITECAN
     Dosage: 7.5 MG/KG, C4D1
     Route: 042
     Dates: start: 20220316
  5. SACITUZUMAB GOVITECAN [Suspect]
     Active Substance: SACITUZUMAB GOVITECAN
     Dosage: 7.5 MG/KG, C5D1 ,C5D8
     Route: 042
     Dates: start: 20220406, end: 20220413
  6. SACITUZUMAB GOVITECAN [Suspect]
     Active Substance: SACITUZUMAB GOVITECAN
     Dosage: 7.5 MG/KG, C6D1 ,C6D8
     Route: 042
     Dates: start: 20220427, end: 20220504
  7. SACITUZUMAB GOVITECAN [Suspect]
     Active Substance: SACITUZUMAB GOVITECAN
     Dosage: 7.5 MG/KG, C7D1 ,C7D8
     Route: 042
     Dates: start: 20220518, end: 20220525
  8. SACITUZUMAB GOVITECAN [Suspect]
     Active Substance: SACITUZUMAB GOVITECAN
     Dosage: 7.5 MG/KG, C8D1 AND D8
     Route: 042
     Dates: start: 20220608, end: 20220615
  9. SACITUZUMAB GOVITECAN [Suspect]
     Active Substance: SACITUZUMAB GOVITECAN
     Dosage: 7.5 MG/KG, C9D1 ,C9D8
     Route: 042
     Dates: start: 20220629, end: 20220712
  10. SACITUZUMAB GOVITECAN [Suspect]
     Active Substance: SACITUZUMAB GOVITECAN
     Dosage: 7.5 MG/KG, C10D1 AND D8
     Route: 042
     Dates: start: 20220727, end: 20220803
  11. SACITUZUMAB GOVITECAN [Suspect]
     Active Substance: SACITUZUMAB GOVITECAN
     Dosage: 7.5 MG/KG
     Route: 042
     Dates: end: 20220819
  12. PACLITAXEL [Concomitant]
     Active Substance: PACLITAXEL
  13. DOXORUBICIN [Concomitant]
     Active Substance: DOXORUBICIN
  14. EPIRUBICIN [Concomitant]
     Active Substance: EPIRUBICIN

REACTIONS (5)
  - Hepatic cytolysis [Recovered/Resolved]
  - Neutropenia [Recovered/Resolved]
  - Transaminases increased [Recovered/Resolved]
  - COVID-19 [Recovered/Resolved]
  - Off label use [Unknown]

NARRATIVE: CASE EVENT DATE: 20220125
